FAERS Safety Report 7006622-6 (Version None)
Quarter: 2010Q3

REPORT INFORMATION
  Report Type: 
  Country: None (occurrence: None)
  Receive Date: 20100921
  Receipt Date: 20100921
  Transmission Date: 20110219
  Serious: No
  Sender: FDA-Public Use
  Company Number: None

PATIENT
  Sex: Male

DRUGS (12)
  1. LETAIRIS [Suspect]
     Indication: PULMONARY ARTERIAL HYPERTENSION
     Dosage: LETAIRIS 5MG DAILY ORALLY
     Route: 048
     Dates: start: 20090801, end: 20100530
  2. ALPRAZOLAM [Concomitant]
  3. AMLODIPINE [Concomitant]
  4. VICODIN [Concomitant]
  5. EPZICOM [Concomitant]
  6. NORVIR [Concomitant]
  7. REYATAZ [Concomitant]
  8. LISINOPRIL [Concomitant]
  9. ATENOLOL [Concomitant]
  10. LASIX [Concomitant]
  11. COMBIVENT [Concomitant]
  12. NASAREL [Concomitant]

REACTIONS (2)
  - DISCOMFORT [None]
  - OEDEMA PERIPHERAL [None]
